FAERS Safety Report 10224894 (Version 1)
Quarter: 2014Q2

REPORT INFORMATION
  Report Type: Spontaneous
  Country: CN (occurrence: CN)
  Receive Date: 20140609
  Receipt Date: 20140609
  Transmission Date: 20141212
  Serious: Yes (Life-Threatening)
  Sender: FDA-Public Use
  Company Number: CN-GLAXOSMITHKLINE-B1001465A

PATIENT
  Age: 1 Year
  Sex: Male
  Weight: 10.5 kg

DRUGS (4)
  1. VENTOLIN [Suspect]
     Indication: BRONCHIECTASIS
     Dosage: 1ML FOUR TIMES PER DAY
     Route: 055
     Dates: start: 20130824, end: 20130826
  2. CEFOXITIN SODIUM [Suspect]
     Indication: INFECTION
     Route: 042
     Dates: start: 20130824, end: 20130826
  3. BUDESONIDE [Suspect]
     Indication: PRODUCT USED FOR UNKNOWN INDICATION
     Route: 055
  4. IPRATROPIUM BROMIDE [Suspect]
     Indication: PRODUCT USED FOR UNKNOWN INDICATION
     Route: 055

REACTIONS (13)
  - Loss of consciousness [Recovered/Resolved]
  - Pruritus [Recovered/Resolved]
  - Mental disorder [Recovered/Resolved]
  - Chills [Recovered/Resolved]
  - Confusional state [Recovered/Resolved]
  - Hypotension [Recovered/Resolved]
  - Urticaria [Recovered/Resolved]
  - Restlessness [Recovered/Resolved]
  - Feeling jittery [Recovered/Resolved]
  - Rash [Recovered/Resolved]
  - Dyspnoea [Recovered/Resolved]
  - Upper respiratory tract congestion [Recovered/Resolved]
  - Breath sounds abnormal [Recovered/Resolved]
